FAERS Safety Report 8508760-5 (Version None)
Quarter: 2012Q3

REPORT INFORMATION
  Report Type: 
  Country: None (occurrence: None)
  Receive Date: 20120713
  Receipt Date: 20120709
  Transmission Date: 20120928
  Serious: No
  Sender: FDA-Public Use
  Company Number: US-PFIZER INC-2012131778

PATIENT
  Sex: Female
  Weight: 49.887 kg

DRUGS (2)
  1. CYTOMEL [Suspect]
     Indication: HYPOTHYROIDISM
     Dosage: 25 UG, DAILY
     Dates: start: 20000101
  2. LEVOXYL [Concomitant]
     Dosage: 100 UG, DAILY

REACTIONS (4)
  - MUSCLE SPASMS [None]
  - WEIGHT INCREASED [None]
  - HYPERSOMNIA [None]
  - HYPOTHYROIDISM [None]
